FAERS Safety Report 21809960 (Version 1)
Quarter: 2022Q4

REPORT INFORMATION
  Report Type: Spontaneous
  Country: US (occurrence: None)
  Receive Date: 20221231
  Receipt Date: 20221231
  Transmission Date: 20230113
  Serious: Yes (Hospitalization)
  Sender: FDA-Public Use
  Company Number: None

PATIENT
  Sex: Female
  Weight: 47.1 kg

DRUGS (4)
  1. DOXORUBICIN HYDROCHLORIDE [Suspect]
     Active Substance: DOXORUBICIN HYDROCHLORIDE
  2. ETOPOSIDE [Concomitant]
     Active Substance: ETOPOSIDE
  3. PREDNISONE [Concomitant]
     Active Substance: PREDNISONE
  4. RITUXIMAB (MOAB C2B8 anti, CD20, chimeric) [Concomitant]

REACTIONS (5)
  - Febrile neutropenia [None]
  - Thrombocytopenia [None]
  - Productive cough [None]
  - Oropharyngeal pain [None]
  - Tachycardia [None]

NARRATIVE: CASE EVENT DATE: 20221224
